FAERS Safety Report 8514452-9 (Version None)
Quarter: 2012Q3

REPORT INFORMATION
  Report Type: 
  Country: None (occurrence: None)
  Receive Date: 20120717
  Receipt Date: 20120706
  Transmission Date: 20120928
  Serious: Yes (Other)
  Sender: FDA-Public Use
  Company Number: JP-AMGEN-JPNSP2012015620

PATIENT
  Age: 47 Year
  Sex: Male
  Weight: 42 kg

DRUGS (28)
  1. CINACALCET HYDROCHLORIDE [Suspect]
     Dosage: 25 MG, QD
     Route: 048
     Dates: start: 20101019
  2. CARVEDILOL [Concomitant]
     Indication: HYPERTENSION
     Dosage: 10 MG, BID
     Route: 048
     Dates: end: 20111230
  3. OMEPRAZOLE [Concomitant]
     Dosage: 20 MG, QD
     Route: 048
     Dates: start: 20100918
  4. CINACALCET HYDROCHLORIDE [Suspect]
     Dosage: 50 MG, QD
     Route: 048
     Dates: start: 20110309
  5. CARVEDILOL [Suspect]
     Indication: HYPERTENSION
     Dosage: 4 MG, BID
     Route: 048
     Dates: end: 20120116
  6. POLAPREZINC [Suspect]
     Dosage: UNK UNK, UNK
     Route: 048
  7. LAXOBERON [Concomitant]
     Dosage: SINGLE USE
     Route: 048
     Dates: start: 20110125
  8. ROHYPNOL [Concomitant]
     Indication: INSOMNIA
     Dosage: 0.5 MG, ONE TIME DOSE
     Route: 048
     Dates: start: 20110408
  9. PROMACTA [Concomitant]
     Indication: ZINC DEFICIENCY
     Dosage: 75 MG, BID
     Route: 048
     Dates: start: 20111202, end: 20120116
  10. RISPERIDONE [Suspect]
     Dosage: UNK UNK, UNK
     Route: 048
  11. CINACALCET HYDROCHLORIDE [Suspect]
     Indication: HYPERPARATHYROIDISM SECONDARY
     Dosage: 75 MG, QD
     Route: 048
     Dates: start: 20110630, end: 20120124
  12. ISOSORBIDE DINITRATE [Concomitant]
     Dosage: 40 MG, QD
     Route: 062
     Dates: start: 20100629
  13. REFLEX [Concomitant]
     Indication: DELIRIUM
     Dosage: 7.5 MG, QD
     Route: 048
     Dates: start: 20110715
  14. ALDOMET [Concomitant]
     Indication: HYPERTENSION
     Dosage: 125 MG, BID
     Route: 048
     Dates: start: 20110830, end: 20120112
  15. OLMESARTAN MEDOXOMIL [Suspect]
     Dosage: UNK UNK, UNK
     Route: 048
  16. METHYLDOPA [Suspect]
     Dosage: UNK UNK, UNK
     Route: 048
  17. DAI-KENCHU-TO [Suspect]
     Indication: ILEUS
     Dosage: 5 G, TID
     Route: 048
     Dates: start: 20100729
  18. DOXAZOSIN MESYLATE [Concomitant]
     Indication: HYPERTENSION
     Dosage: 4 MG, BID
     Route: 048
     Dates: end: 20120116
  19. ALOSENN [Concomitant]
     Dosage: 1 G, QD
     Route: 048
  20. DOXAZOSIN MESYLATE [Suspect]
     Dosage: UNK UNK, UNK
     Route: 048
  21. PANTOSIN [Concomitant]
     Indication: ILEUS
     Dosage: UNK UNK, TID
     Route: 048
     Dates: start: 20110328
  22. RISPERDAL [Concomitant]
     Indication: DELIRIUM
     Dosage: 0.5 MG, QD
     Route: 048
     Dates: start: 20110720, end: 20111230
  23. LOXONIN [Concomitant]
     Indication: ARTHRALGIA
     Dosage: 60 MG, TID
     Route: 048
     Dates: start: 20111210, end: 20120109
  24. AMLODIPINE [Concomitant]
     Dosage: UNK
     Route: 048
  25. NORVASC [Concomitant]
     Indication: HYPERTENSION
     Dosage: 5 MG, TID
     Route: 048
     Dates: start: 20110818
  26. OLMESARTAN MEDOXOMIL [Concomitant]
     Indication: HYPERTENSION
     Dosage: 20 MG, BID
     Route: 048
     Dates: start: 20110927, end: 20111230
  27. LOXOPROFEN [Suspect]
     Dosage: UNK UNK, UNK
     Route: 048
  28. LAXOBERON [Concomitant]
     Indication: CONSTIPATION
     Dosage: UNK UNK, ONE TIME DOSE
     Route: 048
     Dates: start: 20110125

REACTIONS (1)
  - HYPOGLYCAEMIA [None]
